FAERS Safety Report 5341431-5 (Version None)
Quarter: 2007Q2

REPORT INFORMATION
  Report Type: 
  Country: None (occurrence: None)
  Receive Date: 20070530
  Receipt Date: 20070518
  Transmission Date: 20071010
  Serious: Yes (Life-Threatening)
  Sender: FDA-Public Use
  Company Number: GXKR2007GB04507

PATIENT
  Sex: Male
  Weight: 3.1 kg

DRUGS (6)
  1. OMEPRAZOLE [Suspect]
     Dosage: TRANSPLACENTAL
     Route: 064
     Dates: start: 20070101
  2. METOCLOPRAMIDE (NGX) (METOCLORPAMIDE) UNKNOWN [Suspect]
     Dosage: TRANSPLACENTAL
     Route: 064
  3. CYCLIZINE (CYCLIZINE) [Suspect]
     Dosage: TRANSPLACENTAL
     Route: 064
  4. PROCHLORPERAZINE MALEATE [Suspect]
     Dosage: TRANSPLACENTAL
     Route: 064
  5. ZOFRAN [Suspect]
     Dosage: TRANSPLACENTAL
     Route: 064
  6. FERROUS FUMARATE [Concomitant]

REACTIONS (6)
  - ABDOMINAL DISTENSION [None]
  - APGAR SCORE LOW [None]
  - DRUG EXPOSURE DURING PREGNANCY [None]
  - LAPAROTOMY [None]
  - MECONIUM ABNORMAL [None]
  - NECROTISING COLITIS [None]
